FAERS Safety Report 18515047 (Version 2)
Quarter: 2021Q4

REPORT INFORMATION
  Report Type: Spontaneous
  Country: US (occurrence: US)
  Receive Date: 20201118
  Receipt Date: 20211129
  Transmission Date: 20220303
  Serious: No
  Sender: FDA-Public Use
  Company Number: US-UCBSA-2020032103

PATIENT
  Sex: Female
  Weight: 63.04 kg

DRUGS (3)
  1. VIMPAT [Suspect]
     Active Substance: LACOSAMIDE
     Indication: Seizure
     Dosage: UNK UNK, 2X/DAY (BID)
     Route: 048
     Dates: start: 2018, end: 202005
  2. MODAFINIL [Concomitant]
     Active Substance: MODAFINIL
     Indication: Narcolepsy
     Dosage: 100 MILLIGRAM, ONCE DAILY (QD)
     Route: 048
     Dates: start: 2017
  3. MIDODRINE [Concomitant]
     Active Substance: MIDODRINE
     Indication: Hypotension
     Dosage: 5 MILLIGRAM, 3X/DAY (TID)
     Route: 048
     Dates: start: 2017, end: 202007

REACTIONS (3)
  - Dry mouth [Not Recovered/Not Resolved]
  - Drug ineffective [Unknown]
  - Palpitations [Not Recovered/Not Resolved]

NARRATIVE: CASE EVENT DATE: 20180101
